FAERS Safety Report 13098783 (Version 1)
Quarter: 2017Q1

REPORT INFORMATION
  Report Type: Spontaneous
  Country: US (occurrence: US)
  Receive Date: 20170109
  Receipt Date: 20170109
  Transmission Date: 20170428
  Serious: Yes (Hospitalization, Other)
  Sender: FDA-Public Use
  Company Number: US-B.I. PHARMACEUTICALS,INC./RIDGEFIELD-2017-BI-000866

PATIENT
  Sex: Male

DRUGS (1)
  1. AGGRENOX [Suspect]
     Active Substance: ASPIRIN\DIPYRIDAMOLE
     Indication: PRODUCT USED FOR UNKNOWN INDICATION
     Dosage: FORM STRENGTH: 25MG/200MG; UNIT DOSE: 25MG/200MG; DAILY DOSE: 50MG/400 MG
     Dates: start: 2005

REACTIONS (7)
  - Nerve injury [Not Recovered/Not Resolved]
  - Skin ulcer [Recovered/Resolved]
  - Aortic aneurysm [Recovered/Resolved]
  - Blood pressure decreased [Recovered/Resolved]
  - Cerebrovascular accident [Recovered/Resolved]
  - Heart rate decreased [Recovered/Resolved]
  - Loss of consciousness [Recovered/Resolved]

NARRATIVE: CASE EVENT DATE: 2006
